FAERS Safety Report 9850042 (Version 1)
Quarter: 2013Q4

REPORT INFORMATION
  Report Type: Spontaneous
  Country: US (occurrence: None)
  Receive Date: 20131226
  Receipt Date: 20131226
  Transmission Date: 20140711
  Serious: Yes (Disabling, Other)
  Sender: FDA-Public Use
  Company Number: PHEH2012US015448

PATIENT
  Age: 42 Year
  Sex: Female
  Weight: 128.5 kg

DRUGS (2)
  1. AFINITOR (RAD) UNKNOWN [Suspect]
     Indication: PANCREATIC NEUROENDOCRINE TUMOUR
     Route: 048
     Dates: start: 20120713
  2. INSULIN (INSULIN) [Concomitant]

REACTIONS (3)
  - Cough [None]
  - Dyspnoea [None]
  - Nausea [None]
